FAERS Safety Report 26075338 (Version 1)
Quarter: 2025Q4

REPORT INFORMATION
  Report Type: Other
  Country: US (occurrence: US)
  Receive Date: 20251121
  Receipt Date: 20251121
  Transmission Date: 20260118
  Serious: No
  Sender: VERASTEM
  Company Number: US-VERASTEM-250922US-AFCPK-00596

PATIENT

DRUGS (2)
  1. AVMAPKI FAKZYNJA CO-PACK [Suspect]
     Active Substance: AVUTOMETINIB POTASSIUM\DEFACTINIB HYDROCHLORIDE
     Indication: Ovarian cancer
     Dosage: AVMAPKI 3.2MG ONCE DAILY (ON DAYS 1 AND 4) FOR 3 WEEKS THEN 1 WEEK OFF, FAKZYNJA 200MG TWICE DAILY F
     Route: 048
     Dates: start: 20250917
  2. DOXYCYCLINE [Concomitant]
     Active Substance: DOXYCYCLINE
     Indication: Product used for unknown indication

REACTIONS (11)
  - Chromaturia [Unknown]
  - Haematochezia [Unknown]
  - Dehydration [Recovering/Resolving]
  - Hypotension [Recovered/Resolved]
  - Dizziness [Unknown]
  - Asthenia [Not Recovered/Not Resolved]
  - Vision blurred [Recovered/Resolved]
  - Diarrhoea [Recovered/Resolved]
  - Dyspepsia [Recovered/Resolved]
  - Nausea [Unknown]
  - Vomiting [Recovered/Resolved]

NARRATIVE: CASE EVENT DATE: 20250917
